FAERS Safety Report 10445160 (Version 1)
Quarter: 2014Q3

REPORT INFORMATION
  Report Type: Spontaneous
  Country: US (occurrence: US)
  Receive Date: 20140910
  Receipt Date: 20140910
  Transmission Date: 20150326
  Serious: Yes (Other)
  Sender: FDA-Public Use
  Company Number: US-SA-2014SA122802

PATIENT
  Age: 42 Year
  Sex: Male
  Weight: 74.8 kg

DRUGS (4)
  1. TADALAFIL [Concomitant]
     Active Substance: TADALAFIL
  2. LASIX [Suspect]
     Active Substance: FUROSEMIDE
     Route: 065
  3. TREPROSTINOL [Suspect]
     Active Substance: TREPROSTINIL
     Indication: PULMONARY ARTERIAL HYPERTENSION
     Route: 055
     Dates: start: 20140611
  4. AMBRISENTAN [Concomitant]
     Active Substance: AMBRISENTAN

REACTIONS (2)
  - Dyspnoea [Unknown]
  - Haemoptysis [Unknown]

NARRATIVE: CASE EVENT DATE: 201408
